FAERS Safety Report 6938206-X (Version None)
Quarter: 2010Q3

REPORT INFORMATION
  Report Type: 
  Country: None (occurrence: None)
  Receive Date: 20100817
  Receipt Date: 20100802
  Transmission Date: 20110219
  Serious: Yes (Hospitalization, Other)
  Sender: FDA-Public Use
  Company Number: ENTC2010-0260

PATIENT
  Age: 65 Year
  Sex: Male

DRUGS (2)
  1. STALEVO 100 [Suspect]
     Indication: PARKINSON'S DISEASE
     Dosage: 600 MG (150 MG, 4 IN 1 D), ORAL
     Route: 048
  2. SINEMET [Suspect]
     Indication: PARKINSON'S DISEASE
     Dosage: 200 MG DAILY

REACTIONS (7)
  - APATHY [None]
  - ATRIOVENTRICULAR BLOCK [None]
  - CONFUSIONAL STATE [None]
  - FALL [None]
  - HYPOTONIA [None]
  - LOSS OF CONSCIOUSNESS [None]
  - SKIN LACERATION [None]
